FAERS Safety Report 5957759-1 (Version None)
Quarter: 2008Q4

REPORT INFORMATION
  Report Type: 
  Country: None (occurrence: None)
  Receive Date: 20081114
  Receipt Date: 20081114
  Transmission Date: 20090506
  Serious: Yes (Life-Threatening, Other)
  Sender: FDA-Public Use
  Company Number: None

PATIENT
  Age: 52 Year
  Sex: Female
  Weight: 104.3273 kg

DRUGS (2)
  1. LEVOXYL [Suspect]
     Indication: PARATHYROIDECTOMY
     Dosage: 1 TABLET DAILY
     Dates: start: 20070909, end: 20081031
  2. LEVOXYL [Suspect]
     Indication: THYROIDECTOMY
     Dosage: 1 TABLET DAILY
     Dates: start: 20070909, end: 20081031

REACTIONS (2)
  - BONE PAIN [None]
  - MYALGIA [None]
